FAERS Safety Report 9302590 (Version 2)
Quarter: 2013Q2

REPORT INFORMATION
  Report Type: Spontaneous
  Country: IE (occurrence: IE)
  Receive Date: 20130522
  Receipt Date: 20130627
  Transmission Date: 20140414
  Serious: Yes (Death, Hospitalization)
  Sender: FDA-Public Use
  Company Number: IE-AMGEN-IRLSP2013035914

PATIENT
  Age: 67 Year
  Sex: Female

DRUGS (6)
  1. NEULASTA [Suspect]
     Indication: PRODUCT USED FOR UNKNOWN INDICATION
     Dosage: 6 MG, ONCE
     Route: 058
     Dates: start: 20130419
  2. BENDAMUSTINE [Concomitant]
     Indication: LYMPHOMA
     Dosage: 90 MG/M2, EVERY 28 DAYS
     Route: 042
     Dates: start: 20130417
  3. VALACICLOVIR [Concomitant]
     Indication: PROPHYLAXIS
     Dosage: 500 MG, OD
     Route: 048
     Dates: start: 20130417
  4. COTRIMOXAZOLE [Concomitant]
     Indication: PROPHYLAXIS
     Dosage: 960 MG, BID 3/WEEK
     Route: 048
     Dates: start: 20130417
  5. PANTOPRAZOLE [Concomitant]
     Indication: GASTRITIS
     Dosage: 40 MG, OD
     Route: 048
     Dates: start: 2010
  6. RITUXIMAB [Concomitant]
     Indication: LYMPHOMA
     Dosage: UNK

REACTIONS (3)
  - Septic shock [Fatal]
  - Renal failure [Fatal]
  - Disseminated intravascular coagulation [Fatal]
